FAERS Safety Report 10083615 (Version 1)
Quarter: 2014Q2

REPORT INFORMATION
  Report Type: Spontaneous
  Country: US (occurrence: None)
  Receive Date: 20140416
  Receipt Date: 20140416
  Transmission Date: 20141212
  Serious: No
  Sender: FDA-Public Use
  Company Number: None

PATIENT
  Age: 86 Year
  Sex: Male
  Weight: 64.86 kg

DRUGS (5)
  1. FLUOCINONIDE [Suspect]
     Indication: RASH
     Dosage: .05%, 1 TUBE, TWICE DAILY, ON SKIN
     Route: 061
     Dates: start: 20130920, end: 20130925
  2. PENNICILLIN [Concomitant]
  3. CLINDAMYCIN [Concomitant]
  4. DIPHENHRANHE [Concomitant]
  5. FLUTICA SWNC [Concomitant]

REACTIONS (4)
  - Diarrhoea [None]
  - Amnesia [None]
  - Nausea [None]
  - Muscle disorder [None]
